FAERS Safety Report 12609780 (Version 1)
Quarter: 2016Q3

REPORT INFORMATION
  Report Type: Spontaneous
  Country: US (occurrence: US)
  Receive Date: 20160801
  Receipt Date: 20160801
  Transmission Date: 20161109
  Serious: Yes (Death, Other)
  Sender: FDA-Public Use
  Company Number: US-BRISTOL-MYERS SQUIBB COMPANY-BMS-2016-062240

PATIENT
  Sex: Female

DRUGS (2)
  1. ABILIFY [Suspect]
     Active Substance: ARIPIPRAZOLE
     Indication: BIPOLAR DISORDER
     Route: 065
  2. OXYCONTIN [Suspect]
     Active Substance: OXYCODONE HYDROCHLORIDE
     Indication: FIBROMYALGIA
     Route: 065

REACTIONS (15)
  - Borderline personality disorder [Unknown]
  - Depression [Unknown]
  - Suicidal ideation [Unknown]
  - Pulmonary embolism [Unknown]
  - Weight increased [Unknown]
  - Bulimia nervosa [Unknown]
  - Blood disorder [Unknown]
  - Eating disorder [Unknown]
  - Fatigue [Unknown]
  - Compulsive shopping [Unknown]
  - Anxiety [Unknown]
  - Death [Fatal]
  - Hypersexuality [Unknown]
  - Panic attack [Unknown]
  - Liver disorder [Unknown]
